FAERS Safety Report 9586326 (Version 1)
Quarter: 2013Q4

REPORT INFORMATION
  Report Type: Report from Study
  Country: BR (occurrence: BR)
  Receive Date: 20131003
  Receipt Date: 20131003
  Transmission Date: 20140711
  Serious: Yes (Hospitalization, Other)
  Sender: FDA-Public Use
  Company Number: PHHY2013BR109823

PATIENT
  Age: 52 Year
  Sex: Male
  Weight: 61 kg

DRUGS (5)
  1. EXJADE [Suspect]
     Indication: SICKLE CELL ANAEMIA
     Dosage: 3 DF, DAILY
     Route: 048
     Dates: start: 201201
  2. EXJADE [Suspect]
     Dosage: 2 DF, DAILY
     Route: 048
     Dates: end: 201212
  3. EXJADE [Suspect]
     Dosage: 2 DF, DAILY
     Route: 048
     Dates: start: 20130923
  4. FOLIC ACID [Concomitant]
     Indication: ANTICOAGULANT THERAPY
     Dosage: 2 DF, WEEKLY
     Route: 048
  5. HYDREA [Concomitant]
     Indication: SICKLE CELL ANAEMIA WITH CRISIS
     Dosage: 2 DF, DAILY
     Route: 048

REACTIONS (11)
  - Sickle cell anaemia with crisis [Recovered/Resolved]
  - Malaise [Recovered/Resolved]
  - Dizziness [Recovered/Resolved]
  - Fatigue [Recovered/Resolved]
  - Dyspnoea [Recovered/Resolved]
  - Feeling of despair [Recovered/Resolved]
  - Pallor [Recovered/Resolved]
  - Pain in extremity [Recovered/Resolved]
  - Haematocrit decreased [Recovered/Resolved]
  - Blood pressure increased [Recovered/Resolved]
  - Blood iron increased [Recovering/Resolving]
